FAERS Safety Report 10074103 (Version 2)
Quarter: 2014Q2

REPORT INFORMATION
  Report Type: Spontaneous
  Country: JP (occurrence: JP)
  Receive Date: 20140411
  Receipt Date: 20140521
  Transmission Date: 20141212
  Serious: Yes (Other)
  Sender: FDA-Public Use
  Company Number: PHHY2014JP043697

PATIENT
  Age: 56 Year
  Sex: Male

DRUGS (4)
  1. NEORAL [Suspect]
     Indication: PUSTULAR PSORIASIS
     Dosage: 250 MG, UNK
     Route: 048
     Dates: start: 20110326, end: 20120214
  2. METHOTREXATE [Interacting]
     Indication: PUSTULAR PSORIASIS
     Dosage: 7.5 MG, WEEKLY
  3. TIGASONE [Suspect]
     Indication: PUSTULAR PSORIASIS
     Dosage: 30 MG, UNK
     Route: 048
     Dates: start: 20110304, end: 20110325
  4. PREDNISOLONE [Concomitant]

REACTIONS (10)
  - Renal impairment [Recovering/Resolving]
  - Viral uveitis [Recovering/Resolving]
  - Blindness [Recovered/Resolved]
  - Blood creatinine increased [Recovering/Resolving]
  - Retinal infiltrates [Recovering/Resolving]
  - Retinal haemorrhage [Recovering/Resolving]
  - Anterior chamber inflammation [Recovering/Resolving]
  - Keratitis [Recovering/Resolving]
  - Joint destruction [Recovering/Resolving]
  - Deformity [Recovering/Resolving]
